FAERS Safety Report 4627787-7 (Version None)
Quarter: 2005Q2

REPORT INFORMATION
  Report Type: 
  Country: None (occurrence: None)
  Receive Date: 20050401
  Receipt Date: 20030630
  Transmission Date: 20051028
  Serious: No
  Sender: FDA-Public Use
  Company Number: 5706

PATIENT
  Age: 69 Year
  Sex: Female

DRUGS (2)
  1. CYTARABINE [Suspect]
     Dosage: 1400 MG/M2 PER_CYCLE
  2. DAUNORUBICIN HCL [Concomitant]

REACTIONS (4)
  - ERYTHEMA [None]
  - PAIN [None]
  - PETECHIAE [None]
  - PLATELET COUNT DECREASED [None]
